FAERS Safety Report 9049669 (Version 2)
Quarter: 2013Q2

REPORT INFORMATION
  Report Type: Spontaneous
  Country: FR (occurrence: FR)
  Receive Date: 20130205
  Receipt Date: 20130516
  Transmission Date: 20140414
  Serious: Yes (Life-Threatening, Hospitalization)
  Sender: FDA-Public Use
  Company Number: FR-BRISTOL-MYERS SQUIBB COMPANY-17347485

PATIENT
  Age: 85 Year
  Sex: Female
  Weight: 52 kg

DRUGS (4)
  1. ELIQUIS [Suspect]
     Indication: THROMBOSIS PROPHYLAXIS
     Dosage: TAKING AT MRNNG AND EVNG.
     Dates: start: 20130122, end: 20130125
  2. PARACETAMOL [Concomitant]
     Indication: PAIN
     Dosage: FROM 21JAN13 TO 05FEB2013, ORALLY
     Route: 042
  3. VANCOMYCIN [Concomitant]
     Indication: ANTIBIOTIC PROPHYLAXIS
     Dosage: 1 DF-100 (UNIT NOS)
     Route: 042
     Dates: start: 20130121, end: 20130122
  4. MORPHINE [Concomitant]
     Indication: ANALGESIC THERAPY
     Dosage: 1 DF-10 (UNIT NOS)
     Route: 058
     Dates: start: 20130121, end: 20130125

REACTIONS (2)
  - Pulmonary embolism [Recovered/Resolved with Sequelae]
  - Deep vein thrombosis [Recovered/Resolved with Sequelae]
